FAERS Safety Report 24757925 (Version 1)
Quarter: 2024Q4

REPORT INFORMATION
  Report Type: Spontaneous
  Country: US (occurrence: US)
  Receive Date: 20241220
  Receipt Date: 20241220
  Transmission Date: 20250115
  Serious: No
  Sender: CIPLA
  Company Number: US-BMS-IMIDS-REMS-SI-11892390

PATIENT

DRUGS (14)
  1. LENALIDOMIDE [Suspect]
     Active Substance: LENALIDOMIDE
     Indication: Product used for unknown indication
     Dosage: 25 MILLIGRAM
     Route: 065
     Dates: start: 20240620
  2. LENALIDOMIDE [Suspect]
     Active Substance: LENALIDOMIDE
     Dosage: 15 MG, UNK
     Route: 065
     Dates: start: 2024
  3. ZOVIRAX [Concomitant]
     Active Substance: ACYCLOVIR
     Indication: Prophylaxis
     Dosage: 400 MILLIGRAM, BID
     Route: 048
     Dates: start: 20240604
  4. AMOXICILLIN [Concomitant]
     Active Substance: AMOXICILLIN
     Indication: Product used for unknown indication
     Dosage: 400 MILLIGRAM, BID
     Route: 048
     Dates: start: 20240912
  5. ASPIRIN [Concomitant]
     Active Substance: ASPIRIN
     Indication: Thrombosis
     Dosage: 81 MILLIGRAM, QD
     Route: 048
     Dates: start: 20240604
  6. DECADRON [Concomitant]
     Active Substance: DEXAMETHASONE
     Indication: Plasma cell myeloma
     Dosage: 20 MILLIGRAM, TAKE FIVE (5) TABLETS (20 MG TOTAL DOSE) ORALLY DAILY ON DAYS 1 AND 2, 8 AND 9, 15 AND
     Route: 048
     Dates: start: 20240604
  7. REVLIMID [Concomitant]
     Active Substance: LENALIDOMIDE
     Indication: Plasma cell myeloma
     Dosage: 15 MILLIGRAM, QD (BY MOUTH DAYS 1-21 OF A 28-DAY CYCLE)
     Route: 048
     Dates: start: 20240903
  8. SYNTHROID [Concomitant]
     Active Substance: LEVOTHYROXINE SODIUM
     Indication: Product used for unknown indication
     Dosage: 50 MICROGRAM, QD (TAKE 1 TABLET BY MOUTH DAILY BEFORE BREAKFAST)
     Route: 048
     Dates: start: 20240417
  9. ZOFRAN [Concomitant]
     Active Substance: ONDANSETRON HYDROCHLORIDE
     Indication: Nausea
     Dosage: 8 MILLIGRAM, PRN (TAKE 1 TABLET (8 MG) EVERY 8 HOURS AS NEEDED BY MOUTH FOR NAUSEA)
     Route: 048
     Dates: start: 20240604
  10. ZOFRAN [Concomitant]
     Active Substance: ONDANSETRON HYDROCHLORIDE
     Indication: Vomiting
  11. CRESTOR [Concomitant]
     Active Substance: ROSUVASTATIN CALCIUM
     Indication: Product used for unknown indication
     Dosage: 5 MILLIGRAM, QD (TAKE 1 TABLET (5 MG) DAILY BY MOUTH)
     Route: 048
     Dates: start: 20240401
  12. IMITREX [Concomitant]
     Active Substance: SUMATRIPTAN SUCCINATE
     Indication: Product used for unknown indication
     Dosage: 50 MILLIGRAM, PRN (TAKE ONE TAB DAILY AS NEEDED, MAY REPEAT DOSE X 1 AFTER 2H MAX 200MG/24H)
     Route: 065
     Dates: start: 20231229
  13. ERGOCALCIFEROL [Concomitant]
     Active Substance: ERGOCALCIFEROL
     Indication: Product used for unknown indication
     Dosage: TAKE 1,200 MG BY MOUTH
     Route: 048
  14. ZOMETA [Concomitant]
     Active Substance: ZOLEDRONIC ACID
     Indication: Product used for unknown indication
     Dosage: GIVE 4 MG INTRAVENOUSLY
     Route: 042

REACTIONS (3)
  - Incorrect dose administered [Unknown]
  - Product dispensing error [Unknown]
  - Rash [Recovered/Resolved]

NARRATIVE: CASE EVENT DATE: 20240620
